FAERS Safety Report 5356524-6 (Version None)
Quarter: 2007Q2

REPORT INFORMATION
  Report Type: 
  Country: None (occurrence: None)
  Receive Date: 20070530
  Receipt Date: 20061016
  Transmission Date: 20071010
  Serious: Yes (Hospitalization)
  Sender: FDA-Public Use
  Company Number: US200608006377

PATIENT
  Age: 60 Year
  Sex: Male
  Weight: 88.4 kg

DRUGS (3)
  1. ZYPREXA [Suspect]
     Dosage: 2.5 MG
     Dates: start: 19980101, end: 20030101
  2. QUETIAPINE FUMARATE [Concomitant]
  3. DEPAKOTE [Concomitant]

REACTIONS (5)
  - BLOOD CHOLESTEROL ABNORMAL [None]
  - BLOOD TRIGLYCERIDES INCREASED [None]
  - DIABETES MELLITUS [None]
  - DIABETIC COMA [None]
  - HYPERGLYCAEMIA [None]
